FAERS Safety Report 19280368 (Version 1)
Quarter: 2021Q2

REPORT INFORMATION
  Report Type: Other
  Country: FR (occurrence: FR)
  Receive Date: 20210520
  Receipt Date: 20210520
  Transmission Date: 20210717
  Serious: Yes (Hospitalization)
  Sender: FDA-Public Use
  Company Number: FR-ROCHE-2674325

PATIENT
  Age: 55 Year
  Sex: Female
  Weight: 68 kg

DRUGS (21)
  1. ATEZOLIZUMAB. [Suspect]
     Active Substance: ATEZOLIZUMAB
     Indication: NON-SMALL CELL LUNG CANCER METASTATIC
     Dosage: SUBSEQUENTLY RECEIVED DOSE ON 09/JAN/2020
     Route: 042
     Dates: start: 20191205
  2. BROMAZEPAM [Concomitant]
     Active Substance: BROMAZEPAM
  3. INNOHEP [Concomitant]
     Active Substance: TINZAPARIN SODIUM
  4. MOVENTIG [Concomitant]
     Active Substance: NALOXEGOL OXALATE
     Dates: start: 20200525
  5. LAROXYL [Concomitant]
     Active Substance: AMITRIPTYLINE HYDROCHLORIDE
     Dates: start: 20200518
  6. DOLIPRANE [Concomitant]
     Active Substance: ACETAMINOPHEN
  7. CHOLECALCIFEROL [Concomitant]
     Active Substance: CHOLECALCIFEROL
     Indication: DECREASED APPETITE
     Dates: start: 20200429
  8. ZOPHREN [Concomitant]
     Active Substance: ONDANSETRON
     Indication: NAUSEA
     Dates: start: 20200728
  9. HALDOL [Concomitant]
     Active Substance: HALOPERIDOL
     Indication: NAUSEA
     Dates: start: 20200429
  10. LEVOTHYROX [Concomitant]
     Active Substance: LEVOTHYROXINE
  11. FLECTOR [Concomitant]
     Active Substance: DICLOFENAC EPOLAMINE
  12. DIFFU K [Concomitant]
     Active Substance: POTASSIUM CHLORIDE
     Dates: start: 20191221
  13. PRIMPERAN [Concomitant]
     Active Substance: METOCLOPRAMIDE HYDROCHLORIDE
     Indication: NAUSEA
  14. DUROGESIC [Concomitant]
     Active Substance: FENTANYL
  15. OXYNORM [Concomitant]
     Active Substance: OXYCODONE HYDROCHLORIDE
  16. PREDNISONE. [Concomitant]
     Active Substance: PREDNISONE
     Dates: start: 20191221
  17. ERYTHROPOIETIN [Concomitant]
     Active Substance: ERYTHROPOIETIN
     Indication: ANAEMIA
     Dates: start: 20200518
  18. INEXIUM [Concomitant]
     Active Substance: ESOMEPRAZOLE
     Indication: PROPHYLAXIS
  19. ABSTRAL [Concomitant]
     Active Substance: FENTANYL CITRATE
  20. SPECIAFOLDINE [Concomitant]
     Active Substance: FOLIC ACID
     Dates: start: 20200221
  21. FUMAFER [Concomitant]
     Active Substance: FERROUS FUMARATE
     Indication: ANAEMIA
     Dates: start: 20200518

REACTIONS (1)
  - Peripheral sensory neuropathy [Recovered/Resolved with Sequelae]

NARRATIVE: CASE EVENT DATE: 20200109
